FAERS Safety Report 17133382 (Version 2)
Quarter: 2019Q4

REPORT INFORMATION
  Report Type: Spontaneous
  Country: CZ (occurrence: CZ)
  Receive Date: 20191210
  Receipt Date: 20191223
  Transmission Date: 20200122
  Serious: Yes (Death, Hospitalization)
  Sender: FDA-Public Use
  Company Number: CZ-TEVA-2019-CZ-1149511

PATIENT
  Age: 25 Year
  Sex: Male

DRUGS (4)
  1. ADENOSINE. [Suspect]
     Active Substance: ADENOSINE
     Indication: VENTRICULAR TACHYCARDIA
     Route: 042
  2. ESCITALOPRAM [Suspect]
     Active Substance: ESCITALOPRAM OXALATE
     Indication: DEPRESSION
     Dosage: 250 MILLIGRAM DAILY;
     Route: 065
  3. ESCITALOPRAM [Suspect]
     Active Substance: ESCITALOPRAM OXALATE
     Indication: SUICIDE ATTEMPT
  4. ADENOSINE. [Suspect]
     Active Substance: ADENOSINE
     Indication: ELECTROCARDIOGRAM QRS COMPLEX ABNORMAL

REACTIONS (9)
  - Drug ineffective [Unknown]
  - Ventricular fibrillation [Recovered/Resolved]
  - Brain death [Fatal]
  - Serotonin syndrome [Fatal]
  - Completed suicide [Fatal]
  - Electrocardiogram QRS complex abnormal [Recovered/Resolved]
  - Ventricular tachycardia [Recovered/Resolved]
  - Overdose [Fatal]
  - Coma [Fatal]
